FAERS Safety Report 17305027 (Version 1)
Quarter: 2020Q1

REPORT INFORMATION
  Report Type: Report from Study
  Country: None (occurrence: US)
  Receive Date: 20200122
  Receipt Date: 20200122
  Transmission Date: 20200409
  Serious: Yes (Other)
  Sender: FDA-Public Use
  Company Number: US-ABBVIE-19K-163-2995278-00

PATIENT
  Sex: Female

DRUGS (1)
  1. HUMIRA [Suspect]
     Active Substance: ADALIMUMAB
     Indication: CROHN^S DISEASE
     Route: 058
     Dates: end: 201912

REACTIONS (10)
  - Post procedural inflammation [Unknown]
  - Neck surgery [Unknown]
  - Injection site haemorrhage [Recovering/Resolving]
  - Spinal fusion surgery [Unknown]
  - Alopecia [Not Recovered/Not Resolved]
  - Stress [Not Recovered/Not Resolved]
  - Injection site bruising [Recovering/Resolving]
  - Injection site papule [Recovering/Resolving]
  - Crohn^s disease [Not Recovered/Not Resolved]
  - Injection site extravasation [Recovering/Resolving]

NARRATIVE: CASE EVENT DATE: 2019
